FAERS Safety Report 6267031-0 (Version None)
Quarter: 2009Q3

REPORT INFORMATION
  Report Type: 
  Country: None (occurrence: None)
  Receive Date: 20090714
  Receipt Date: 20090331
  Transmission Date: 20100115
  Serious: No
  Sender: FDA-Public Use
  Company Number: US-BAYER-200834943NA

PATIENT
  Age: 37 Year
  Sex: Female
  Weight: 68 kg

DRUGS (1)
  1. YAZ [Suspect]
     Indication: MENSTRUATION IRREGULAR
     Route: 048
     Dates: start: 20080905, end: 20090317

REACTIONS (5)
  - DYSSTASIA [None]
  - HEADACHE [None]
  - NAUSEA [None]
  - NO ADVERSE EVENT [None]
  - VULVOVAGINAL DISCOMFORT [None]
